FAERS Safety Report 4731590-7 (Version None)
Quarter: 2005Q3

REPORT INFORMATION
  Report Type: 
  Country: None (occurrence: None)
  Receive Date: 20050801
  Receipt Date: 20050801
  Transmission Date: 20060218
  Serious: No
  Sender: FDA-Public Use
  Company Number: None

PATIENT
  Sex: Male
  Weight: 104 kg

DRUGS (7)
  1. GABAPENTIN [Suspect]
     Indication: NEUROPATHIC PAIN
     Dosage: 900 MG PO TID
     Route: 048
     Dates: start: 20041207, end: 20041208
  2. FELODIPINE [Concomitant]
  3. NPH INSULIN [Concomitant]
  4. FUNASTERIDE [Concomitant]
  5. TERAZOSIN [Concomitant]
  6. NIACIN [Concomitant]
  7. WARFARIN [Concomitant]

REACTIONS (7)
  - COORDINATION ABNORMAL [None]
  - DISORIENTATION [None]
  - DYSARTHRIA [None]
  - NEUROPATHY [None]
  - PHANTOM PAIN [None]
  - PLEURAL EFFUSION [None]
  - TREMOR [None]
